FAERS Safety Report 11801899 (Version 1)
Quarter: 2015Q4

REPORT INFORMATION
  Report Type: Spontaneous
  Country: FR (occurrence: FR)
  Receive Date: 20151204
  Receipt Date: 20151204
  Transmission Date: 20160305
  Serious: Yes (Death, Hospitalization, Other)
  Sender: FDA-Public Use
  Company Number: FR-CELGENE-FRA-2015116718

PATIENT

DRUGS (2)
  1. AZACITIDINE. [Suspect]
     Active Substance: AZACITIDINE
     Indication: ACUTE MYELOID LEUKAEMIA
     Route: 065
  2. REVLIMID [Suspect]
     Active Substance: LENALIDOMIDE
     Indication: ACUTE MYELOID LEUKAEMIA
     Route: 048

REACTIONS (11)
  - Depression [Unknown]
  - Pyrexia [Unknown]
  - Sudden death [Fatal]
  - Cardiac disorder [Unknown]
  - Atrial fibrillation [Unknown]
  - Febrile neutropenia [Unknown]
  - Acute myeloid leukaemia recurrent [Unknown]
  - Neutropenia [Unknown]
  - Thrombocytopenia [Unknown]
  - Vascular purpura [Unknown]
  - Diarrhoea [Unknown]
